FAERS Safety Report 12233806 (Version 3)
Quarter: 2018Q2

REPORT INFORMATION
  Report Type: Spontaneous
  Country: US (occurrence: US)
  Receive Date: 20160404
  Receipt Date: 20180502
  Transmission Date: 20180711
  Serious: Yes (Hospitalization, Disabling, Other)
  Sender: FDA-Public Use
  Company Number: US-ENDO PHARMACEUTICALS INC.-2016-000410

PATIENT
  Age: 53 Year
  Sex: Male
  Weight: 86.17 kg

DRUGS (6)
  1. MEGACE [Concomitant]
     Active Substance: MEGESTROL ACETATE
     Indication: WEIGHT INCREASED
     Dosage: UNK UNKNOWN, UNKNOWN
     Route: 065
     Dates: end: 201101
  2. PERCOCET [Concomitant]
     Active Substance: ACETAMINOPHEN\OXYCODONE HYDROCHLORIDE
     Indication: PRODUCT USED FOR UNKNOWN INDICATION
     Dosage: (5) MG, UNKNOWN
     Dates: start: 20110316
  3. TESTOPEL [Suspect]
     Active Substance: TESTOSTERONE
     Indication: ANDROGEN REPLACEMENT THERAPY
     Dosage: 75 MG, MONTHLY (12 PELLETS)
     Route: 058
     Dates: start: 20110316, end: 20130209
  4. TESTIM [Suspect]
     Active Substance: TESTOSTERONE
     Indication: ANDROGEN REPLACEMENT THERAPY
     Dosage: UNK UNKNOWN, UNKNOWN
     Route: 065
     Dates: start: 2011, end: 2013
  5. DEPO-TESTOSTERONE [Suspect]
     Active Substance: TESTOSTERONE CYPIONATE
     Indication: ANDROGEN REPLACEMENT THERAPY
     Dosage: 200 MG/ML, UNKNOWN
     Route: 065
     Dates: start: 20110202
  6. VIAGRA [Concomitant]
     Active Substance: SILDENAFIL CITRATE
     Indication: PRODUCT USED FOR UNKNOWN INDICATION
     Dosage: 100 MG, DAILY (1 TABLET)
     Route: 065
     Dates: start: 20110105

REACTIONS (3)
  - Pancreatitis [Unknown]
  - Thrombosis [Not Recovered/Not Resolved]
  - Intermittent claudication [Unknown]

NARRATIVE: CASE EVENT DATE: 2012
